FAERS Safety Report 6842228-7 (Version None)
Quarter: 2010Q3

REPORT INFORMATION
  Report Type: 
  Country: None (occurrence: None)
  Receive Date: 20100714
  Receipt Date: 20070723
  Transmission Date: 20110219
  Serious: No
  Sender: FDA-Public Use
  Company Number: US-PFIZER INC-2007062311

PATIENT
  Sex: Female
  Weight: 53.1 kg

DRUGS (7)
  1. CHANTIX [Suspect]
     Indication: SMOKING CESSATION THERAPY
     Dates: start: 20070101, end: 20070701
  2. ANALGESICS [Interacting]
     Indication: PAIN
  3. DRUG, UNSPECIFIED [Concomitant]
  4. HYDROCODONE [Concomitant]
  5. MS CONTIN [Concomitant]
  6. CARISOPRODOL [Concomitant]
  7. ESTRADIOL [Concomitant]

REACTIONS (10)
  - ACNE [None]
  - BLISTER [None]
  - CONSTIPATION [None]
  - DRUG INTERACTION [None]
  - DRY SKIN [None]
  - HYPERSENSITIVITY [None]
  - NAUSEA [None]
  - PAIN OF SKIN [None]
  - SKIN DISORDER [None]
  - VOMITING [None]
